FAERS Safety Report 5787326-4 (Version None)
Quarter: 2008Q2

REPORT INFORMATION
  Report Type: 
  Country: None (occurrence: None)
  Receive Date: 20080623
  Receipt Date: 20080623
  Transmission Date: 20081010
  Serious: Yes (Life-Threatening, Hospitalization)
  Sender: FDA-Public Use
  Company Number: None

PATIENT
  Age: 51 Year
  Sex: Female
  Weight: 83.4619 kg

DRUGS (1)
  1. GEODON [Suspect]
     Indication: BIPOLAR II DISORDER
     Dosage: MAXIMUM ALLOWED DAILY PO
     Route: 048
     Dates: start: 20040717, end: 20040727

REACTIONS (6)
  - DYSPEPSIA [None]
  - FALL [None]
  - JUDGEMENT IMPAIRED [None]
  - MALAISE [None]
  - NIGHTMARE [None]
  - SOMNOLENCE [None]
